FAERS Safety Report 10762595 (Version 3)
Quarter: 2015Q2

REPORT INFORMATION
  Report Type: Spontaneous
  Country: US (occurrence: US)
  Receive Date: 20150204
  Receipt Date: 20150415
  Transmission Date: 20150821
  Serious: No
  Sender: FDA-Public Use
  Company Number: US-PFIZER INC-2015042084

PATIENT
  Age: 52 Year
  Sex: Male

DRUGS (3)
  1. MSCONTIN [Concomitant]
     Dosage: 30 MG, 3X/DAY
     Dates: start: 2006
  2. PERCOCET [Concomitant]
     Active Substance: ACETAMINOPHEN\OXYCODONE HYDROCHLORIDE
     Dosage: 5 MG, 3X/DAY
     Dates: start: 2009
  3. GABAPENTIN. [Suspect]
     Active Substance: GABAPENTIN
     Indication: FIBROMYALGIA
     Dosage: 300 MG, 2X/DAY
     Dates: start: 201411

REACTIONS (3)
  - Dysstasia [Not Recovered/Not Resolved]
  - Pain [Unknown]
  - Drug ineffective [Unknown]

NARRATIVE: CASE EVENT DATE: 201411
